FAERS Safety Report 7751205-3 (Version None)
Quarter: 2011Q3

REPORT INFORMATION
  Report Type: 
  Country: None (occurrence: None)
  Receive Date: 20110914
  Receipt Date: 20071228
  Transmission Date: 20111222
  Serious: Yes (Other)
  Sender: FDA-Public Use
  Company Number: PHHY2007NL03772

PATIENT
  Sex: Male

DRUGS (3)
  1. SANDOSTATIN LAR [Suspect]
     Indication: ACROMEGALY
     Dosage: 30 MG, ONCE PER FOUR WEEK
     Dates: start: 20071002
  2. SANDOSTATIN LAR [Suspect]
     Dosage: 30 MG, ONCE PER FOUR WEEK
     Dates: start: 20071227, end: 20071227
  3. SANDOSTATIN LAR [Suspect]
     Dosage: 30 MG, ONCE PER FOUR WEEK
     Dates: start: 20080521

REACTIONS (1)
  - HYPOTHALAMO-PITUITARY DISORDER [None]
